FAERS Safety Report 16260545 (Version 1)
Quarter: 2019Q2

REPORT INFORMATION
  Report Type: Spontaneous
  Country: JP (occurrence: JP)
  Receive Date: 20190501
  Receipt Date: 20190501
  Transmission Date: 20190711
  Serious: Yes (Life-Threatening)
  Sender: FDA-Public Use
  Company Number: JP-BIOCRYST PHARMACEUTICALS, INC.-2019BCR00144

PATIENT
  Age: 92 Year
  Sex: Male

DRUGS (4)
  1. RAPIACTA [Suspect]
     Active Substance: PERAMIVIR
     Indication: INFLUENZA
     Dosage: 300 MG
     Route: 042
     Dates: start: 20190321, end: 20190321
  2. RAPIACTA [Suspect]
     Active Substance: PERAMIVIR
     Dosage: 300 MG
     Route: 042
     Dates: start: 20190323, end: 20190324
  3. ELNEOPA NF NO.2 [Concomitant]
     Dosage: UNK
     Dates: end: 20190327
  4. SULBACILLIN [Concomitant]
     Active Substance: AMPICILLIN SODIUM\SULBACTAM SODIUM
     Dosage: UNK
     Dates: start: 20190323, end: 20190326

REACTIONS (2)
  - Hypercalcaemia [Recovered/Resolved]
  - Azotaemia [Recovered/Resolved]

NARRATIVE: CASE EVENT DATE: 20190327
